FAERS Safety Report 6510233-6 (Version None)
Quarter: 2009Q4

REPORT INFORMATION
  Report Type: 
  Country: None (occurrence: None)
  Receive Date: 20091217
  Receipt Date: 20091202
  Transmission Date: 20100525
  Serious: Yes (Other)
  Sender: FDA-Public Use
  Company Number: 2009SP039465

PATIENT
  Age: 16 Year
  Sex: Female
  Weight: 68 kg

DRUGS (11)
  1. REMERON [Suspect]
     Indication: BIPOLAR DISORDER
     Dosage: 15 MG;QD;PO
     Route: 048
     Dates: start: 20071001, end: 20071201
  2. REMERON [Suspect]
     Indication: DEPRESSION
     Dosage: 15 MG;QD;PO
     Route: 048
     Dates: start: 20071001, end: 20071201
  3. REMERON [Suspect]
     Indication: PSYCHOTIC DISORDER
     Dosage: 15 MG;QD;PO
     Route: 048
     Dates: start: 20071001, end: 20071201
  4. LEXOTANIL (BROMAZEPAM) (1.5 MG) [Suspect]
     Indication: ANXIETY DISORDER
     Dosage: 1.5 MG;QD;PO
     Route: 048
     Dates: start: 20060201, end: 20060901
  5. ZOLPIDEM TARTRATE [Suspect]
     Indication: DRUG USE FOR UNKNOWN INDICATION
     Dosage: 10 MG;QD;PO
     Route: 048
     Dates: start: 20060901, end: 20070901
  6. ABILIFY [Suspect]
     Indication: SCHIZOPHRENIA
     Dosage: 5 MG;QD;PO ; 15 MG;QD;PO
     Route: 048
     Dates: start: 20070301, end: 20070907
  7. ABILIFY [Suspect]
     Indication: SCHIZOPHRENIA
     Dosage: 5 MG;QD;PO ; 15 MG;QD;PO
     Route: 048
     Dates: start: 20070907, end: 20071201
  8. CITALOPRAM HYDROBROMIDE [Suspect]
     Indication: DEPRESSION
     Dosage: 20 MG;QD;PO
     Route: 048
     Dates: start: 20061101, end: 20070301
  9. CITALOPRAM HYDROBROMIDE [Suspect]
     Indication: PSYCHOTIC DISORDER
     Dosage: 20 MG;QD;PO
     Route: 048
     Dates: start: 20061101, end: 20070301
  10. CITALOPRAM HYDROBROMIDE [Suspect]
     Indication: SCHIZOPHRENIA
     Dosage: 20 MG;QD;PO
     Route: 048
     Dates: start: 20061101, end: 20070301
  11. SIRDALUD MR (TIZANIDINE HYDROCHLORIDE) [Suspect]
     Indication: MUSCLE SPASMS
     Dosage: 6 MG;QD;PO
     Route: 048
     Dates: start: 20071001, end: 20071201

REACTIONS (10)
  - AGGRESSION [None]
  - FATIGUE [None]
  - IRRITABILITY [None]
  - NIGHTMARE [None]
  - PERSONALITY DISORDER [None]
  - SELF-INJURIOUS IDEATION [None]
  - SUICIDE ATTEMPT [None]
  - TREMOR [None]
  - VISION BLURRED [None]
  - VOMITING [None]
